FAERS Safety Report 9745590 (Version 2)
Quarter: 2014Q1

REPORT INFORMATION
  Report Type: Spontaneous
  Country: US (occurrence: US)
  Receive Date: 20131211
  Receipt Date: 20140116
  Transmission Date: 20141002
  Serious: No
  Sender: FDA-Public Use
  Company Number: US-PFIZER INC-2013351816

PATIENT
  Age: 66 Year
  Sex: Female
  Weight: 118 kg

DRUGS (1)
  1. ZYVOX [Suspect]
     Indication: STAPHYLOCOCCAL INFECTION
     Dosage: 600 MG, 2X/DAY
     Route: 048
     Dates: start: 20131121

REACTIONS (7)
  - Diarrhoea [Unknown]
  - Oral discomfort [Unknown]
  - Oral discomfort [Unknown]
  - Lip blister [Unknown]
  - Dysgeusia [Unknown]
  - Fatigue [Unknown]
  - Malaise [Unknown]
